FAERS Safety Report 5083592-1 (Version None)
Quarter: 2006Q3

REPORT INFORMATION
  Report Type: 
  Country: None (occurrence: None)
  Receive Date: 20060818
  Receipt Date: 20060713
  Transmission Date: 20061208
  Serious: Yes (Hospitalization)
  Sender: FDA-Public Use
  Company Number: FR-GLAXOSMITHKLINE-B0431331A

PATIENT
  Age: 74 Year
  Sex: Male

DRUGS (7)
  1. AVANDIA [Suspect]
     Dosage: 4MG PER DAY
     Route: 048
     Dates: start: 20060601, end: 20060630
  2. AVANDAMET [Suspect]
     Dosage: 2TAB PER DAY
     Route: 048
     Dates: start: 20060706, end: 20060707
  3. COTAREG [Concomitant]
     Dosage: 1UNIT PER DAY
     Route: 048
     Dates: start: 20000101
  4. ZOCOR [Concomitant]
     Dosage: 20MG PER DAY
     Route: 048
     Dates: start: 20000101
  5. HYPERIUM [Concomitant]
     Dosage: 1TAB PER DAY
     Route: 048
     Dates: start: 20020101
  6. DIAMICRON [Concomitant]
     Dosage: 160MG TWICE PER DAY
     Route: 048
     Dates: start: 19900101
  7. GLUCOPHAGE [Concomitant]
     Dosage: 850MG THREE TIMES PER DAY
     Route: 048
     Dates: start: 19900101, end: 20060714

REACTIONS (12)
  - ARTHRALGIA [None]
  - ASTHENIA [None]
  - DIARRHOEA [None]
  - HENOCH-SCHONLEIN PURPURA [None]
  - HYPERHIDROSIS [None]
  - MALAISE [None]
  - NAUSEA [None]
  - OEDEMA PERIPHERAL [None]
  - PETECHIAE [None]
  - PYREXIA [None]
  - SHOCK [None]
  - VOMITING [None]
